FAERS Safety Report 5658227-7 (Version None)
Quarter: 2008Q1

REPORT INFORMATION
  Report Type: 
  Country: None (occurrence: None)
  Receive Date: 20080310
  Receipt Date: 20071015
  Transmission Date: 20080703
  Serious: No
  Sender: FDA-Public Use
  Company Number: US-BAYER-200710160BCC

PATIENT
  Age: 48 Year
  Sex: Female
  Weight: 44 kg

DRUGS (14)
  1. ALEVE [Suspect]
     Indication: TOOTHACHE
     Dosage: TOTAL DAILY DOSE: 220 MG  UNIT DOSE: 220 MG
     Route: 048
     Dates: start: 20070113
  2. IBUPROFEN [Suspect]
     Indication: TOOTHACHE
     Dosage: UNIT DOSE: 200 MG
     Route: 048
     Dates: start: 20070113
  3. HYPERICUM [Suspect]
     Indication: NEURALGIA
     Route: 048
     Dates: start: 20070113
  4. ELMIRON [Concomitant]
     Route: 048
  5. LESSINA [Concomitant]
  6. ACT FLOURIDE RINSE [Concomitant]
  7. ESTER C [Concomitant]
  8. MULTI-VITAMIN [Concomitant]
  9. MULTIMINERALS [Concomitant]
  10. CALCIUM [Concomitant]
  11. LYSINE [Concomitant]
  12. ARNICA [Concomitant]
     Indication: SOFT TISSUE INJURY
  13. FLUCONAZOLE [Concomitant]
     Indication: VULVOVAGINAL MYCOTIC INFECTION
     Route: 048
     Dates: start: 20070102
  14. FLUCONAZOLE [Concomitant]
     Route: 048
     Dates: start: 20070105

REACTIONS (18)
  - ASTHENIA [None]
  - CHRONIC FATIGUE SYNDROME [None]
  - DIARRHOEA [None]
  - DRY MOUTH [None]
  - DYSSTASIA [None]
  - FATIGUE [None]
  - GAIT DISTURBANCE [None]
  - HEART RATE INCREASED [None]
  - LOSS OF CONSCIOUSNESS [None]
  - MUSCULAR WEAKNESS [None]
  - NAUSEA [None]
  - NERVOUSNESS [None]
  - ORTHOSTATIC HYPOTENSION [None]
  - PALPITATIONS [None]
  - PARAESTHESIA [None]
  - SOMNOLENCE [None]
  - THIRST [None]
  - TREMOR [None]
